FAERS Safety Report 10263480 (Version 2)
Quarter: 2014Q3

REPORT INFORMATION
  Report Type: Spontaneous
  Country: US (occurrence: US)
  Receive Date: 20140626
  Receipt Date: 20140708
  Transmission Date: 20150326
  Serious: No
  Sender: FDA-Public Use
  Company Number: US-PFIZER INC-2014173199

PATIENT
  Age: 80 Year
  Sex: Female

DRUGS (2)
  1. ADVIL [Suspect]
     Active Substance: IBUPROFEN
     Indication: MUSCLE STRAIN
     Dosage: UNK
     Dates: end: 20140621
  2. ADVIL [Suspect]
     Active Substance: IBUPROFEN
     Dosage: UNK (TWO IBUPROFEN IN THE MORNING)
     Dates: start: 20140621, end: 20140621

REACTIONS (1)
  - Skin discolouration [Unknown]

NARRATIVE: CASE EVENT DATE: 20140621
